FAERS Safety Report 13910085 (Version 1)
Quarter: 2017Q3

REPORT INFORMATION
  Report Type: Spontaneous
  Country: US (occurrence: None)
  Receive Date: 20170822
  Receipt Date: 20170822
  Transmission Date: 20171127
  Serious: Yes (Other)
  Sender: FDA-Public Use
  Company Number: None

PATIENT
  Age: 76 Year
  Sex: Female

DRUGS (10)
  1. FLUNISOLIDE. [Concomitant]
     Active Substance: FLUNISOLIDE
  2. MELOXICAM. [Concomitant]
     Active Substance: MELOXICAM
  3. SILDENAFIL. [Concomitant]
     Active Substance: SILDENAFIL
  4. OMEPRAZOLE. [Concomitant]
     Active Substance: OMEPRAZOLE
  5. METOCLOPRAMIDE. [Concomitant]
     Active Substance: METOCLOPRAMIDE
  6. OPSUMIT [Suspect]
     Active Substance: MACITENTAN
     Indication: PULMONARY ARTERIAL HYPERTENSION
     Route: 048
     Dates: start: 201511
  7. SELEXIPAG [Concomitant]
     Active Substance: SELEXIPAG
  8. TRAMADOL. [Concomitant]
     Active Substance: TRAMADOL
  9. ASA [Concomitant]
     Active Substance: ASPIRIN
  10. ALENDRONATE [Concomitant]
     Active Substance: ALENDRONATE SODIUM

REACTIONS (1)
  - Rectal haemorrhage [None]

NARRATIVE: CASE EVENT DATE: 20170718
